FAERS Safety Report 6880746-6 (Version None)
Quarter: 2010Q3

REPORT INFORMATION
  Report Type: 
  Country: None (occurrence: None)
  Receive Date: 20100728
  Receipt Date: 20100714
  Transmission Date: 20110219
  Serious: Yes (Hospitalization, Disabling, Other)
  Sender: FDA-Public Use
  Company Number: AU-BAYER-201020542GPV

PATIENT
  Age: 63 Year
  Sex: Female
  Weight: 72 kg

DRUGS (54)
  1. SORAFENIB [Suspect]
     Indication: HEPATIC NEOPLASM MALIGNANT
     Dosage: TOTAL DAILY DOSE: 800 MG  UNIT DOSE: 200 MG
     Route: 048
     Dates: start: 20100312, end: 20100319
  2. SORAFENIB [Suspect]
     Route: 048
     Dates: start: 20100320, end: 20100320
  3. SORAFENIB [Suspect]
     Route: 048
     Dates: start: 20100323, end: 20100323
  4. SORAFENIB [Suspect]
     Route: 048
     Dates: start: 20100604, end: 20100702
  5. SORAFENIB [Suspect]
     Route: 048
     Dates: start: 20100703
  6. SORAFENIB [Suspect]
     Dosage: TOTAL DAILY DOSE: 800 MG  UNIT DOSE: 200 MG
     Route: 048
     Dates: start: 20100324, end: 20100422
  7. SORAFENIB [Suspect]
     Dates: start: 20100321, end: 20100322
  8. SORAFENIB [Suspect]
     Dates: start: 20100507, end: 20100513
  9. SORAFENIB [Suspect]
     Route: 048
     Dates: start: 20100514, end: 20100603
  10. SORAFENIB [Suspect]
     Dosage: TOTAL DAILY DOSE: 800 MG  UNIT DOSE: 200 MG
     Route: 048
     Dates: start: 20100423, end: 20100506
  11. ERLOTINIB [Suspect]
     Indication: HEPATIC NEOPLASM MALIGNANT
     Route: 048
     Dates: start: 20100604, end: 20100701
  12. ERLOTINIB [Suspect]
     Route: 048
     Dates: start: 20100312, end: 20100319
  13. ERLOTINIB [Suspect]
     Route: 048
     Dates: start: 20100323, end: 20100419
  14. ERLOTINIB [Suspect]
     Dates: start: 20100507, end: 20100513
  15. ERLOTINIB [Suspect]
     Route: 048
     Dates: start: 20100320, end: 20100322
  16. ERLOTINIB [Suspect]
     Route: 048
     Dates: start: 20100420, end: 20100506
  17. ERLOTINIB [Suspect]
     Route: 048
     Dates: start: 20100514, end: 20100603
  18. ERLOTINIB [Suspect]
     Route: 048
     Dates: start: 20100702
  19. MIXTARD HUMAN 70/30 [Concomitant]
     Indication: TYPE 2 DIABETES MELLITUS
     Route: 058
  20. MIXTARD HUMAN 70/30 [Concomitant]
     Dates: start: 20100331
  21. MIXTARD HUMAN 70/30 [Concomitant]
     Route: 058
     Dates: start: 19990101, end: 20100330
  22. PROPRANOLOL [Concomitant]
     Indication: PORTAL HYPERTENSION
     Route: 048
  23. PROPRANOLOL [Concomitant]
     Dates: start: 20100325
  24. PROPRANOLOL [Concomitant]
     Route: 048
     Dates: start: 19990101, end: 20100324
  25. TRITACE [Concomitant]
     Indication: HYPERTENSION
     Route: 048
     Dates: start: 20060101
  26. MODURETIC 5-50 [Concomitant]
     Indication: HYPERTENSION
     Route: 048
     Dates: start: 20060101, end: 20100319
  27. VYTORIN [Concomitant]
     Indication: HYPERLIPIDAEMIA
     Route: 048
  28. VYTORIN [Concomitant]
     Route: 048
     Dates: start: 20070101, end: 20100331
  29. ALENDRATE [Concomitant]
     Indication: OSTEOPOROSIS
     Route: 048
     Dates: start: 20080101
  30. VALIUM [Concomitant]
     Indication: ANXIETY
     Route: 048
  31. VALIUM [Concomitant]
     Route: 048
     Dates: start: 20080101
  32. FLEXOTARD [Concomitant]
     Indication: NASAL CONGESTION
     Dosage: 2 PUFFS OF 125MG
     Route: 055
     Dates: start: 20060101, end: 20100323
  33. FLEXOTARD [Concomitant]
     Dates: end: 20100323
  34. THIAMINE HCL [Concomitant]
     Indication: VITAMIN SUPPLEMENTATION
     Route: 048
     Dates: start: 20080101
  35. ENDONE [Concomitant]
     Indication: BACK PAIN
     Dates: start: 20100318, end: 20100331
  36. PARACETAMOL [Concomitant]
     Indication: BACK PAIN
     Route: 048
     Dates: start: 20100315
  37. HEPARIN [Concomitant]
     Indication: THROMBOSIS PROPHYLAXIS
     Dates: start: 20100318, end: 20100401
  38. BISUO [Concomitant]
     Indication: HEPATIC ENCEPHALOPATHY
     Dates: start: 20100323, end: 20100331
  39. OXAZEPAM [Concomitant]
     Indication: INSOMNIA
     Dates: start: 20100319, end: 20100320
  40. VITAMINORUM [Concomitant]
     Indication: MEDICAL DIET
     Dates: start: 20100319
  41. FLUTICASONE PROPIONATE [Concomitant]
     Indication: RESPIRATORY TRACT INFECTION
     Dosage: 50/25 MCG
     Dates: start: 20100326, end: 20100326
  42. ALBUTEROL [Concomitant]
     Indication: CHRONIC OBSTRUCTIVE PULMONARY DISEASE
     Dates: start: 20100322
  43. TEMAZEPAM [Concomitant]
     Indication: INSOMNIA
     Dates: start: 20100321
  44. ZOLPIDEM [Concomitant]
     Indication: INSOMNIA
     Dates: start: 20080101
  45. MAXOLON [Concomitant]
     Indication: NAUSEA
     Dates: start: 20100416, end: 20100507
  46. IMODIUM [Concomitant]
     Indication: DIARRHOEA
     Dates: start: 20100416
  47. FLAGYL [Concomitant]
     Indication: DIARRHOEA
     Dates: start: 20100416
  48. ZOFRAN [Concomitant]
     Indication: NAUSEA
     Dates: start: 20100409
  49. IPRATROPIUM BROMIDE [Concomitant]
     Indication: WHEEZING
     Dates: start: 20100323, end: 20100325
  50. STEMETIL [Concomitant]
     Indication: NAUSEA
     Dates: start: 20100507
  51. MOTILIUM [Concomitant]
     Indication: NAUSEA
     Dates: start: 20100507
  52. MIRTAZAPINE [Concomitant]
     Indication: ANXIETY
     Dates: start: 20100703
  53. MIRTAZAPINE [Concomitant]
     Dates: start: 20100611, end: 20100702
  54. SIGMACORT [Concomitant]
     Indication: PERIANAL ERYTHEMA
     Dosage: 20 MM
     Dates: start: 20100414

REACTIONS (6)
  - CONFUSIONAL STATE [None]
  - HEPATIC ENCEPHALOPATHY [None]
  - HYPOXIA [None]
  - PRODUCTIVE COUGH [None]
  - RESPIRATORY TRACT INFECTION [None]
  - WHEEZING [None]
